FAERS Safety Report 8019760-6 (Version None)
Quarter: 2012Q1

REPORT INFORMATION
  Report Type: 
  Country: None (occurrence: None)
  Receive Date: 20120103
  Receipt Date: 20111220
  Transmission Date: 20120608
  Serious: Yes (Hospitalization)
  Sender: FDA-Public Use
  Company Number: US-GLAXOSMITHKLINE-B0772200A

PATIENT
  Sex: Male

DRUGS (2)
  1. BETAMETHASONE [Suspect]
     Indication: PRENATAL CARE
     Route: 064
  2. PROPRANOLOL [Suspect]
     Indication: HYPERTENSION
     Route: 064

REACTIONS (3)
  - HYPERTHYROIDISM [None]
  - FOETAL EXPOSURE DURING PREGNANCY [None]
  - LIVE BIRTH [None]
